FAERS Safety Report 14935068 (Version 2)
Quarter: 2018Q2

REPORT INFORMATION
  Report Type: Report from Study
  Country: DE (occurrence: DE)
  Receive Date: 20180524
  Receipt Date: 20180529
  Transmission Date: 20180711
  Serious: Yes (Life-Threatening, Hospitalization, Other)
  Sender: FDA-Public Use
  Company Number: DE-BRISTOL-MYERS SQUIBB COMPANY-BMS-2018-047445

PATIENT
  Age: 52 Year
  Sex: Male

DRUGS (2)
  1. NIVOLUMAB [Suspect]
     Active Substance: NIVOLUMAB
     Indication: MALIGNANT MELANOMA
     Dosage: 74.0 MG, Q3WK
     Route: 042
     Dates: start: 20180419, end: 20180522
  2. IPILIMUMAB [Suspect]
     Active Substance: IPILIMUMAB
     Indication: MALIGNANT MELANOMA
     Dosage: 222.0 MG, Q3WK
     Route: 042
     Dates: start: 20180419, end: 20180522

REACTIONS (2)
  - Radiculopathy [Not Recovered/Not Resolved]
  - Quadriplegia [Unknown]

NARRATIVE: CASE EVENT DATE: 20180520
